FAERS Safety Report 4331297-4 (Version None)
Quarter: 2004Q1

REPORT INFORMATION
  Report Type: 
  Country: None (occurrence: None)
  Receive Date: 20040331
  Receipt Date: 20040322
  Transmission Date: 20041129
  Serious: Yes (Hospitalization, Other)
  Sender: FDA-Public Use
  Company Number: 2004-03-1420

PATIENT
  Age: 63 Year
  Sex: Female
  Weight: 60 kg

DRUGS (13)
  1. PEG-INTRON [Suspect]
     Indication: HEPATITIS C
     Dosage: SEE IMAGE
     Dates: start: 20001008, end: 20001201
  2. PEG-INTRON [Suspect]
     Indication: HEPATITIS C
     Dosage: SEE IMAGE
     Dates: start: 20001201, end: 20010401
  3. PEG-INTRON [Suspect]
     Indication: HEPATITIS C
     Dosage: SEE IMAGE
     Dates: start: 20010401, end: 20010919
  4. PEG-INTRON [Suspect]
     Indication: HEPATITIS C
     Dosage: SEE IMAGE
     Dates: start: 20010920, end: 20021215
  5. PEG-INTRON [Suspect]
     Indication: HEPATITIS C
     Dosage: SEE IMAGE
     Dates: start: 20021216, end: 20030728
  6. PEG-INTRON [Suspect]
     Indication: HEPATITIS C
     Dosage: SEE IMAGE
     Dates: start: 20001008, end: 20031005
  7. PEG-INTRON [Suspect]
     Indication: HEPATITIS C
     Dosage: SEE IMAGE
     Dates: start: 20030819, end: 20031005
  8. VIRAFERONPEG [Suspect]
     Indication: HEPATITIS C
     Dates: start: 19971201, end: 19980301
  9. VIRAFERONPEG [Suspect]
     Indication: HEPATITIS C
     Dates: start: 19990104, end: 19990611
  10. VIRAFERONPEG [Suspect]
     Indication: HEPATITIS C
     Dates: start: 19990612, end: 20000301
  11. REBETOL [Suspect]
     Indication: HEPATITIS C
     Dosage: SEE IMAGE ORAL
     Route: 048
     Dates: start: 19990104, end: 19990611
  12. REBETOL [Suspect]
     Indication: HEPATITIS C
     Dosage: SEE IMAGE ORAL
     Route: 048
     Dates: start: 20001201, end: 20010401
  13. REBETOL [Suspect]
     Indication: HEPATITIS C
     Dosage: SEE IMAGE ORAL
     Route: 048
     Dates: start: 20010920, end: 20021215

REACTIONS (6)
  - ALANINE AMINOTRANSFERASE INCREASED [None]
  - GAMMOPATHY [None]
  - INJECTION SITE NECROSIS [None]
  - LICHEN PLANUS [None]
  - LYMPHOPENIA [None]
  - NEUTROPENIA [None]
